FAERS Safety Report 13515430 (Version 1)
Quarter: 2017Q2

REPORT INFORMATION
  Report Type: Spontaneous
  Country: DE (occurrence: DE)
  Receive Date: 20170504
  Receipt Date: 20170504
  Transmission Date: 20170830
  Serious: Yes (Other)
  Sender: FDA-Public Use
  Company Number: DE-PFIZER INC-2017189439

PATIENT
  Age: 1 Day
  Sex: Male
  Weight: 2.91 kg

DRUGS (7)
  1. VIGANTOLETTEN 1000 [Concomitant]
     Indication: PROPHYLAXIS
  2. VIGANTOLETTEN 1000 [Concomitant]
     Indication: VITAMIN D DEFICIENCY
     Dosage: 1000 IU, 1X/DAY (1 TRIMESTER;0. - 41. GESTATIONAL WEEK)
     Route: 064
     Dates: start: 20160405, end: 20170119
  3. FOLIO FORTE [Concomitant]
     Active Substance: FOLIC ACID\VITAMINS
     Indication: PROPHYLAXIS OF NEURAL TUBE DEFECT
     Dosage: 0.8 MG, DAILY (1. TRIMESTER;0. - 41. GESTATIONAL WEEK)
     Route: 064
     Dates: start: 20160405, end: 20170119
  4. L-THYROXIN [Concomitant]
     Active Substance: LEVOTHYROXINE SODIUM
     Indication: HYPOTHYROIDISM
     Dosage: 25 UG, DAILY (1 TRIMESTER;0. - 41. GESTATIONAL WEEK)
     Route: 064
     Dates: start: 20160405, end: 20170119
  5. TANTUM VERDE [Concomitant]
     Active Substance: BENZYDAMINE HYDROCHLORIDE
     Indication: PHARYNGITIS
     Dosage: 3 TRIMESTER (32. - 33. GESTATIONAL WEEK)
     Route: 064
  6. SERTRALINE HCL [Suspect]
     Active Substance: SERTRALINE HYDROCHLORIDE
     Indication: DEPRESSION
     Dosage: 50 MG, 1X/DAY (1. TRIM. ; 0. - 41. GESTATIONAL WEEK)
     Route: 064
     Dates: start: 20160405, end: 20170119
  7. MENOGON [Concomitant]
     Active Substance: MENOTROPINS
     Indication: INFERTILITY FEMALE
     Dosage: 150 IU, DAILY (0.4. - 1.6. GESTATIONAL WEEK)
     Route: 064
     Dates: start: 20160411, end: 20160420

REACTIONS (2)
  - Maternal exposure during pregnancy [Recovered/Resolved]
  - Small for dates baby [Recovered/Resolved]

NARRATIVE: CASE EVENT DATE: 20170119
